FAERS Safety Report 4571750-1 (Version None)
Quarter: 2005Q1

REPORT INFORMATION
  Report Type: 
  Country: None (occurrence: None)
  Receive Date: 20050207
  Receipt Date: 20050126
  Transmission Date: 20050727
  Serious: Yes (Other)
  Sender: FDA-Public Use
  Company Number: CA-MERCK-0501CAN00122

PATIENT
  Age: 42 Year
  Sex: Female

DRUGS (1)
  1. ZETIA [Suspect]
     Route: 048
     Dates: start: 20040101

REACTIONS (2)
  - INTERNATIONAL NORMALISED RATIO INCREASED [None]
  - VITAMIN K DEFICIENCY [None]
